FAERS Safety Report 5990243-8 (Version None)
Quarter: 2008Q4

REPORT INFORMATION
  Report Type: 
  Country: None (occurrence: None)
  Receive Date: 20081211
  Receipt Date: 20081202
  Transmission Date: 20090506
  Serious: Yes (Other)
  Sender: FDA-Public Use
  Company Number: US-AMGEN-QUU321693

PATIENT
  Sex: Female

DRUGS (1)
  1. NEUPOGEN [Suspect]
     Indication: DRUG USE FOR UNKNOWN INDICATION

REACTIONS (9)
  - BACK PAIN [None]
  - CONFUSIONAL STATE [None]
  - DIZZINESS [None]
  - DYSPNOEA [None]
  - HEADACHE [None]
  - NAUSEA [None]
  - OROPHARYNGEAL PAIN [None]
  - PAIN IN EXTREMITY [None]
  - PALPITATIONS [None]
